FAERS Safety Report 24890784 (Version 10)
Quarter: 2025Q3

REPORT INFORMATION
  Report Type: Report from Study
  Country: US (occurrence: US)
  Receive Date: 20250127
  Receipt Date: 20250717
  Transmission Date: 20251020
  Serious: Yes (Hospitalization, Other)
  Sender: SUNOVION
  Company Number: US-SUMITOMO PHARMA SWITZERLAND GMBH-2025SPA000497

PATIENT

DRUGS (3)
  1. ORGOVYX [Suspect]
     Active Substance: RELUGOLIX
     Indication: Prostate cancer
     Route: 048
     Dates: start: 20241217, end: 20241217
  2. ORGOVYX [Suspect]
     Active Substance: RELUGOLIX
     Dosage: 120 MG, QD (RECEIVED SAMPLES FROM THE MD)
     Route: 048
     Dates: start: 20241218
  3. ORGOVYX [Suspect]
     Active Substance: RELUGOLIX
     Dosage: 120 MG, QD (DISPENSED FROM THE PHARMACY)
     Route: 048
     Dates: start: 20250117

REACTIONS (20)
  - Fall [Unknown]
  - Joint injury [Unknown]
  - Joint dislocation [Unknown]
  - Rib fracture [Unknown]
  - Head injury [Unknown]
  - Atrial fibrillation [Unknown]
  - Blood pressure abnormal [Unknown]
  - Blood pressure decreased [Unknown]
  - Hepatic steatosis [Unknown]
  - Muscular weakness [Unknown]
  - Night sweats [Unknown]
  - Blood glucose increased [Recovering/Resolving]
  - Fatigue [Unknown]
  - Hot flush [Unknown]
  - Hyperhidrosis [Unknown]
  - Myalgia [Unknown]
  - Pain in extremity [Unknown]
  - Insomnia [Unknown]
  - Diarrhoea [Unknown]
  - Product dose omission issue [Unknown]

NARRATIVE: CASE EVENT DATE: 20250412
